FAERS Safety Report 7322082-X (Version None)
Quarter: 2011Q1

REPORT INFORMATION
  Report Type: 
  Country: None (occurrence: None)
  Receive Date: 20110228
  Receipt Date: 20110223
  Transmission Date: 20110831
  Serious: Yes (Death, Hospitalization, Other)
  Sender: FDA-Public Use
  Company Number: PHHO2011US02389

PATIENT
  Sex: Female
  Weight: 69.4 kg

DRUGS (5)
  1. STI571/CGP57148B [Suspect]
     Indication: ACUTE MYELOID LEUKAEMIA
     Dosage: 800 MG, DAILY
     Route: 048
     Dates: start: 20110119, end: 20110130
  2. NEUPOGEN [Concomitant]
  3. ATIVAN [Concomitant]
  4. CYTARABINE [Concomitant]
  5. BENADRYL [Concomitant]

REACTIONS (13)
  - GENERAL PHYSICAL HEALTH DETERIORATION [None]
  - PNEUMONIA [None]
  - MENTAL STATUS CHANGES [None]
  - DISORIENTATION [None]
  - SOMNOLENCE [None]
  - ENDOTRACHEAL INTUBATION [None]
  - FEBRILE NEUTROPENIA [None]
  - DELIRIUM [None]
  - PNEUMONIA FUNGAL [None]
  - ACUTE RESPIRATORY DISTRESS SYNDROME [None]
  - PULMONARY HAEMORRHAGE [None]
  - PLEURAL EFFUSION [None]
  - HYPOXIA [None]
